FAERS Safety Report 16855668 (Version 4)
Quarter: 2021Q1

REPORT INFORMATION
  Report Type: Spontaneous
  Country: US (occurrence: US)
  Receive Date: 20190926
  Receipt Date: 20210104
  Transmission Date: 20210419
  Serious: Yes (Hospitalization, Other)
  Sender: FDA-Public Use
  Company Number: US-GILEAD-2019-0429738

PATIENT
  Sex: Female
  Weight: 81.18 kg

DRUGS (54)
  1. DICLOFENAC [Concomitant]
     Active Substance: DICLOFENAC
  2. SAPHRIS [Concomitant]
     Active Substance: ASENAPINE MALEATE
  3. TIZANIDINE. [Concomitant]
     Active Substance: TIZANIDINE
  4. CYCLOBENZAPRINE. [Concomitant]
     Active Substance: CYCLOBENZAPRINE
  5. PROTONIX [OMEPRAZOLE] [Concomitant]
     Active Substance: OMEPRAZOLE
  6. SIMCORA [Concomitant]
     Active Substance: SIMVASTATIN
  7. TRIUMEQ [Concomitant]
     Active Substance: ABACAVIR SULFATE\DOLUTEGRAVIR SODIUM\LAMIVUDINE
  8. DIVALPROEX [Concomitant]
     Active Substance: DIVALPROEX SODIUM
  9. LISINOPRIL. [Concomitant]
     Active Substance: LISINOPRIL
  10. GABAPENTIN. [Concomitant]
     Active Substance: GABAPENTIN
  11. LUNESTA [Concomitant]
     Active Substance: ESZOPICLONE
  12. NAPROXEN. [Concomitant]
     Active Substance: NAPROXEN
  13. DOXYCYCLINE. [Concomitant]
     Active Substance: DOXYCYCLINE
  14. METOCLOPRAMIDE. [Concomitant]
     Active Substance: METOCLOPRAMIDE
  15. MYRBETRIQ [Concomitant]
     Active Substance: MIRABEGRON
  16. TOLTERODINE [Concomitant]
     Active Substance: TOLTERODINE
  17. VALACYCLOVIR HCL [Concomitant]
     Active Substance: VALACYCLOVIR HYDROCHLORIDE
  18. PROMETHAZINE [Concomitant]
     Active Substance: PROMETHAZINE HYDROCHLORIDE
  19. DIVALPROEX [Concomitant]
     Active Substance: DIVALPROEX SODIUM
  20. DEXAMETHASONE. [Concomitant]
     Active Substance: DEXAMETHASONE
  21. LOTENSINE [Concomitant]
     Active Substance: CAPTOPRIL
  22. TRUVADA [Suspect]
     Active Substance: EMTRICITABINE\TENOFOVIR DISOPROXIL FUMARATE
     Indication: HIV INFECTION
     Dosage: UNK
     Route: 048
     Dates: start: 20120907, end: 20141119
  23. ATRIPLA [Suspect]
     Active Substance: EFAVIRENZ\EMTRICITABINE\TENOFOVIR DISOPROXIL FUMARATE
     Indication: HIV INFECTION
     Dosage: UNK
     Route: 048
     Dates: start: 20090708, end: 20120812
  24. CITALOPRAM [Concomitant]
     Active Substance: CITALOPRAM HYDROBROMIDE
  25. BENZONATATE. [Concomitant]
     Active Substance: BENZONATATE
  26. NORVIR [Concomitant]
     Active Substance: RITONAVIR
  27. TRIAMTERENE HCTZ [Concomitant]
     Active Substance: HYDROCHLOROTHIAZIDE\TRIAMTERENE
  28. SYMBICORT [Concomitant]
     Active Substance: BUDESONIDE\FORMOTEROL FUMARATE DIHYDRATE
  29. MAXALT [Concomitant]
     Active Substance: RIZATRIPTAN BENZOATE
  30. PREDNISONE. [Concomitant]
     Active Substance: PREDNISONE
  31. ATENOLOL. [Concomitant]
     Active Substance: ATENOLOL
  32. PREZCOBIX [Concomitant]
     Active Substance: COBICISTAT\DARUNAVIR ETHANOLATE
  33. TIVICAY [Concomitant]
     Active Substance: DOLUTEGRAVIR SODIUM
  34. ESTRADIOL. [Concomitant]
     Active Substance: ESTRADIOL
  35. FENOFIBRATE. [Concomitant]
     Active Substance: FENOFIBRATE
  36. IRBESARTAN. [Concomitant]
     Active Substance: IRBESARTAN
  37. ABILIFY [Concomitant]
     Active Substance: ARIPIPRAZOLE
  38. ALBUTEROL [SALBUTAMOL] [Concomitant]
     Active Substance: ALBUTEROL
  39. STRIBILD [Suspect]
     Active Substance: COBICISTAT\ELVITEGRAVIR\EMTRICITABINE\TENOFOVIR DISOPROXIL FUMARATE
     Indication: HIV INFECTION
     Dosage: UNK
     Route: 048
     Dates: start: 20141216, end: 20180302
  40. METHOCARBAMOL. [Concomitant]
     Active Substance: METHOCARBAMOL
  41. LISINOPRIL HCTZ [Concomitant]
     Active Substance: HYDROCHLOROTHIAZIDE\LISINOPRIL
  42. TRAMADOL. [Concomitant]
     Active Substance: TRAMADOL
  43. PANTOPRAZOLE [Concomitant]
     Active Substance: PANTOPRAZOLE
  44. FLUCONAZOLE. [Concomitant]
     Active Substance: FLUCONAZOLE
  45. IMITREX [Concomitant]
     Active Substance: SUMATRIPTAN SUCCINATE
  46. LORAZEPAM. [Concomitant]
     Active Substance: LORAZEPAM
  47. PREZISTA [Concomitant]
     Active Substance: DARUNAVIR ETHANOLATE
  48. CIPROFLOXACIN. [Concomitant]
     Active Substance: CIPROFLOXACIN
  49. NIASPAN [Concomitant]
     Active Substance: NIACIN
  50. SIMVASTATIN. [Concomitant]
     Active Substance: SIMVASTATIN
  51. CLONAZEPAM. [Concomitant]
     Active Substance: CLONAZEPAM
  52. HCTZ [Concomitant]
     Active Substance: HYDROCHLOROTHIAZIDE
  53. AMITRIPTYLINE [Concomitant]
     Active Substance: AMITRIPTYLINE
  54. SPIRONOLACTONE. [Concomitant]
     Active Substance: SPIRONOLACTONE

REACTIONS (18)
  - Quality of life decreased [Unknown]
  - Anhedonia [Not Recovered/Not Resolved]
  - Fear [Unknown]
  - Renal failure [Unknown]
  - Foot fracture [Not Recovered/Not Resolved]
  - Protein urine present [Recovered/Resolved]
  - Loss of personal independence in daily activities [Unknown]
  - Depression [Not Recovered/Not Resolved]
  - Decreased activity [Unknown]
  - Chronic kidney disease [Not Recovered/Not Resolved]
  - Fracture [Recovered/Resolved]
  - Pain [Not Recovered/Not Resolved]
  - Emotional distress [Not Recovered/Not Resolved]
  - Bone density decreased [Not Recovered/Not Resolved]
  - Fanconi syndrome acquired [Recovered/Resolved]
  - Anxiety [Not Recovered/Not Resolved]
  - Mobility decreased [Not Recovered/Not Resolved]
  - Economic problem [Not Recovered/Not Resolved]

NARRATIVE: CASE EVENT DATE: 2017
